FAERS Safety Report 20495248 (Version 1)
Quarter: 2022Q1

REPORT INFORMATION
  Report Type: Report from Study
  Country: BE (occurrence: BE)
  Receive Date: 20220221
  Receipt Date: 20220221
  Transmission Date: 20220423
  Serious: Yes (Hospitalization, Other)
  Sender: FDA-Public Use
  Company Number: BE-ROCHE-2992730

PATIENT
  Age: 70 Year
  Sex: Female

DRUGS (15)
  1. CARBOPLATIN [Suspect]
     Active Substance: CARBOPLATIN
     Dosage: 590.7 MG
     Route: 065
  2. ATEZOLIZUMAB [Suspect]
     Active Substance: ATEZOLIZUMAB
     Indication: Small cell lung cancer extensive stage
     Dosage: 1200 MG, EVERY 3 WEEKS
     Route: 041
     Dates: end: 20211215
  3. INDERAL [Concomitant]
     Active Substance: PROPRANOLOL HYDROCHLORIDE
     Dosage: 1 UNK, DAILY
     Route: 065
  4. NASONEX [Concomitant]
     Active Substance: MOMETASONE FUROATE
     Dosage: 0.5 UNK, DAILY
     Dates: start: 20211215
  5. SYMBICORT [Concomitant]
     Active Substance: BUDESONIDE\FORMOTEROL FUMARATE DIHYDRATE
     Dosage: 0.5 UNK, DAILY
     Route: 065
     Dates: start: 20211201
  6. IMODIUM [Concomitant]
     Active Substance: LOPERAMIDE HYDROCHLORIDE
     Dates: start: 20211226
  7. PIPERACILLIN SODIUM\TAZOBACTAM SODIUM [Concomitant]
     Active Substance: PIPERACILLIN SODIUM\TAZOBACTAM SODIUM
     Dosage: 0.25 UNK, DAILY
     Dates: start: 20211224, end: 20211230
  8. AMIKACIN [Concomitant]
     Active Substance: AMIKACIN
     Dosage: 1 UNK, DAILY
     Dates: start: 20211224, end: 20211224
  9. ACETAMINOPHEN [Concomitant]
     Active Substance: ACETAMINOPHEN
     Dates: start: 20211215
  10. LACTULOSE [Concomitant]
     Active Substance: LACTULOSE
  11. KCL [Concomitant]
     Active Substance: POTASSIUM CHLORIDE
  12. NEULASTA [Concomitant]
     Active Substance: PEGFILGRASTIM
  13. FILGRASTIM [Concomitant]
     Active Substance: FILGRASTIM
     Dosage: 1 UNK, DAILY
     Dates: start: 20211225, end: 20211225
  14. ZOLPIDEM TARTRATE [Concomitant]
     Active Substance: ZOLPIDEM TARTRATE
     Dosage: UNK MG
  15. FLUCONAZOLE [Concomitant]
     Active Substance: FLUCONAZOLE
     Dosage: 1 UNK, DAILY
     Dates: start: 20211224, end: 20220101

REACTIONS (5)
  - Febrile neutropenia [Recovering/Resolving]
  - Hypokalaemia [Recovered/Resolved]
  - Diarrhoea [Recovering/Resolving]
  - Anaemia [Recovered/Resolved]
  - Hyponatraemia [Recovered/Resolved]

NARRATIVE: CASE EVENT DATE: 20211224
